FAERS Safety Report 9295214 (Version 2)
Quarter: 2013Q2

REPORT INFORMATION
  Report Type: Spontaneous
  Country: SE (occurrence: SE)
  Receive Date: 20130517
  Receipt Date: 20130611
  Transmission Date: 20140414
  Serious: Yes (Death, Hospitalization)
  Sender: FDA-Public Use
  Company Number: SE-MILLENNIUM PHARMACEUTICALS, INC.-2013-03802

PATIENT
  Sex: 0

DRUGS (6)
  1. VELCADE [Suspect]
     Indication: PLASMA CELL MYELOMA
     Dosage: 1.6 MG, CYCLIC
     Route: 058
     Dates: start: 20130417, end: 20130429
  2. TROMBYL [Concomitant]
  3. LENALIDOMIDE [Concomitant]
     Dosage: 25 MG, UNK
     Route: 048
     Dates: end: 20130417
  4. DEXAMETHASONE [Concomitant]
     Dosage: 40 MG, UNK
     Route: 048
     Dates: end: 20130417
  5. DEXAMETHASONE [Concomitant]
     Dosage: UNK
     Dates: start: 20130418
  6. CORTISONE [Concomitant]

REACTIONS (8)
  - Multi-organ failure [Fatal]
  - Hyperkalaemia [Fatal]
  - Respiratory failure [Fatal]
  - Renal failure [Fatal]
  - Escherichia sepsis [Fatal]
  - Pneumonia [Fatal]
  - Epistaxis [Unknown]
  - Pancytopenia [Unknown]
